FAERS Safety Report 20485885 (Version 1)
Quarter: 2022Q1

REPORT INFORMATION
  Report Type: Spontaneous
  Country: US (occurrence: US)
  Receive Date: 20220217
  Receipt Date: 20220217
  Transmission Date: 20220423
  Serious: Yes (Death, Hospitalization, Other)
  Sender: FDA-Public Use
  Company Number: US-PFIZER INC-202200256765

PATIENT
  Age: 41 Year
  Sex: Male

DRUGS (16)
  1. THEOPHYLLINE [Suspect]
     Active Substance: THEOPHYLLINE
     Dosage: UNK (INGESTION)
     Route: 048
  2. THEOPHYLLINE [Suspect]
     Active Substance: THEOPHYLLINE
     Dosage: UNK (INHALATION)
     Route: 045
  3. INDOMETHACIN [Suspect]
     Active Substance: INDOMETHACIN
     Dosage: UNK (INGESTION)
     Route: 048
  4. INDOMETHACIN [Suspect]
     Active Substance: INDOMETHACIN
     Dosage: UNK (INHALATION)
     Route: 045
  5. GABAPENTIN [Suspect]
     Active Substance: GABAPENTIN
     Dosage: UNK (INGESTION)
     Route: 048
  6. GABAPENTIN [Suspect]
     Active Substance: GABAPENTIN
     Dosage: UNK (INHALATION)
     Route: 045
  7. BENZONATATE [Suspect]
     Active Substance: BENZONATATE
     Dosage: UNK (INGESTION)
     Route: 048
  8. BENZONATATE [Suspect]
     Active Substance: BENZONATATE
     Dosage: UNK (INHALATION)
     Route: 045
  9. ROFLUMILAST [Suspect]
     Active Substance: ROFLUMILAST
     Dosage: UNK (INGESTION)
     Route: 048
  10. ROFLUMILAST [Suspect]
     Active Substance: ROFLUMILAST
     Dosage: UNK (INHALATION)
     Route: 045
  11. ROPINIROLE [Suspect]
     Active Substance: ROPINIROLE
     Dosage: UNK (INGESTION)
     Route: 048
  12. ROPINIROLE [Suspect]
     Active Substance: ROPINIROLE
     Dosage: UNK (INHALATION)
     Route: 045
  13. MELOXICAM [Suspect]
     Active Substance: MELOXICAM
     Dosage: UNK (INGESTION)
     Route: 048
  14. MELOXICAM [Suspect]
     Active Substance: MELOXICAM
     Dosage: UNK (INHALATION)
     Route: 045
  15. RANOLAZINE [Suspect]
     Active Substance: RANOLAZINE
     Dosage: UNK (EXTENDED RELEASE [ER], INGESTION)
     Route: 048
  16. RANOLAZINE [Suspect]
     Active Substance: RANOLAZINE
     Dosage: UNK (EXTENDED RELEASE [ER], INHALATION)
     Route: 045

REACTIONS (1)
  - Drug abuse [Fatal]

NARRATIVE: CASE EVENT DATE: 20200101
